FAERS Safety Report 9657345 (Version 1)
Quarter: 2013Q4

REPORT INFORMATION
  Report Type: Spontaneous
  Country: JP (occurrence: JP)
  Receive Date: 20131030
  Receipt Date: 20131030
  Transmission Date: 20140711
  Serious: Yes (Other)
  Sender: FDA-Public Use
  Company Number: JP-GLAXOSMITHKLINE-B0921287A

PATIENT
  Age: 7 Year
  Sex: Female

DRUGS (5)
  1. FLUTIDE ROTADISK 100 [Suspect]
     Indication: ASTHMA
     Dosage: 100MCG TWICE PER DAY
     Route: 055
     Dates: start: 20130902, end: 20130904
  2. ONON [Concomitant]
     Route: 048
  3. MUCODYNE [Concomitant]
     Indication: PRODUCTIVE COUGH
     Dosage: 250MG THREE TIMES PER DAY
     Route: 048
     Dates: start: 20130828
  4. MUCOSOLVAN [Concomitant]
     Indication: PRODUCTIVE COUGH
     Dosage: 15MG TWICE PER DAY
     Route: 048
     Dates: start: 20130828
  5. SINGULAIR [Concomitant]
     Indication: ASTHMA
     Dosage: 5MG PER DAY
     Route: 048
     Dates: start: 20130828

REACTIONS (3)
  - Hypoaesthesia [Recovered/Resolved]
  - Pain [Recovered/Resolved]
  - Erythema [Recovered/Resolved]
